FAERS Safety Report 7283652-0 (Version None)
Quarter: 2011Q1

REPORT INFORMATION
  Report Type: 
  Country: None (occurrence: None)
  Receive Date: 20110125
  Receipt Date: 20110110
  Transmission Date: 20110831
  Serious: Yes (Death)
  Sender: FDA-Public Use
  Company Number: 025451

PATIENT
  Age: 10 Year
  Sex: Male

DRUGS (10)
  1. METHYLPHENIDATE [Suspect]
     Dosage: ORAL
     Route: 048
  2. CLONAZEPAM [Suspect]
     Dosage: ORAL
     Route: 048
  3. ALPRAZOLAM [Suspect]
     Dosage: ORAL
     Route: 048
  4. RISPERDONE [Suspect]
  5. LORAZEPAM [Suspect]
     Dosage: ORAL
     Route: 048
  6. QUETIAPINE [Suspect]
     Dosage: ORAL
     Route: 048
  7. OMEPRAZOLE [Suspect]
     Dosage: ORAL
     Route: 048
  8. LORATADINE [Suspect]
     Dosage: ORAL
     Route: 048
  9. VALPROIC ACID [Suspect]
     Dosage: ORAL
     Route: 048
  10. ATOMOXETINE HYDROCHLORIDE [Suspect]
     Dosage: ORAL
     Route: 048

REACTIONS (2)
  - RESPIRATORY ARREST [None]
  - CARDIAC ARREST [None]
